FAERS Safety Report 23887905 (Version 1)
Quarter: 2024Q2

REPORT INFORMATION
  Report Type: Spontaneous
  Country: US (occurrence: US)
  Receive Date: 20240523
  Receipt Date: 20240523
  Transmission Date: 20240715
  Serious: Yes (Other)
  Sender: FDA-Public Use
  Company Number: US-TEVA-VS-3194748

PATIENT
  Sex: Female

DRUGS (1)
  1. FENTANYL CITRATE [Suspect]
     Active Substance: FENTANYL CITRATE
     Indication: Product used for unknown indication
     Dosage: ORAL TRANSMUCOSAL
     Route: 048

REACTIONS (4)
  - Drug dependence [Unknown]
  - Product availability issue [Unknown]
  - Stress [Unknown]
  - General physical health deterioration [Unknown]
